FAERS Safety Report 22788304 (Version 5)
Quarter: 2024Q2

REPORT INFORMATION
  Report Type: Spontaneous
  Country: FR (occurrence: FR)
  Receive Date: 20230804
  Receipt Date: 20240402
  Transmission Date: 20240715
  Serious: Yes (Hospitalization, Other)
  Sender: FDA-Public Use
  Company Number: FR-PFIZER INC-202200358510

PATIENT
  Age: 16 Year
  Sex: Male

DRUGS (6)
  1. PREGABALIN [Suspect]
     Active Substance: PREGABALIN
     Indication: Euphoric mood
     Dosage: 900 MILLIGRAM, QD (900 MG, DAILY)
     Route: 048
  2. PREGABALIN [Suspect]
     Active Substance: PREGABALIN
     Indication: Anxiolytic therapy
     Dosage: 1200 MILLIGRAM, QD (1200 MG, DAILY)
     Route: 048
  3. PREGABALIN [Suspect]
     Active Substance: PREGABALIN
     Dosage: 700 MILLIGRAM, QD (700 MILLIGRAM, DAILY)
     Route: 048
     Dates: start: 2020, end: 2021
  4. DIAZEPAM [Suspect]
     Active Substance: DIAZEPAM
     Indication: Product used for unknown indication
     Dosage: 30 MILLIGRAM, QD
     Route: 065
  5. CANNABIS SATIVA SUBSP. INDICA TOP [Concomitant]
     Active Substance: CANNABIS SATIVA SUBSP. INDICA TOP
     Indication: Product used for unknown indication
     Dosage: UNK
     Route: 065
  6. TOBACCO LEAF [Concomitant]
     Active Substance: TOBACCO LEAF
     Dosage: UNK
     Route: 065

REACTIONS (9)
  - Drug withdrawal syndrome [Unknown]
  - Drug dependence [Unknown]
  - Aggression [Unknown]
  - Anxiety [Unknown]
  - Thinking abnormal [Unknown]
  - Overdose [Unknown]
  - Drug abuse [Unknown]
  - Drug use disorder [Unknown]
  - Off label use [Unknown]

NARRATIVE: CASE EVENT DATE: 20200101
